FAERS Safety Report 9121464 (Version 1)
Quarter: 2013Q1

REPORT INFORMATION
  Report Type: Spontaneous
  Country: US (occurrence: US)
  Receive Date: 20130225
  Receipt Date: 20130225
  Transmission Date: 20140127
  Serious: No
  Sender: FDA-Public Use
  Company Number: US-PFIZER INC-2013068202

PATIENT
  Age: 53 Year
  Sex: Male
  Weight: 53.06 kg

DRUGS (2)
  1. NEURONTIN [Suspect]
     Indication: NEURALGIA
     Dosage: 300 MG, 3X/DAY
     Route: 048
     Dates: start: 20130201
  2. HYDROCODONE [Concomitant]
     Dosage: UNK

REACTIONS (3)
  - Nightmare [Unknown]
  - Abdominal discomfort [Unknown]
  - Drug ineffective [Unknown]
